FAERS Safety Report 7926653-9 (Version None)
Quarter: 2011Q4

REPORT INFORMATION
  Report Type: 
  Country: None (occurrence: None)
  Receive Date: 20111118
  Receipt Date: 20111110
  Transmission Date: 20120403
  Serious: Yes (Other)
  Sender: FDA-Public Use
  Company Number: US-AMGEN-TCS412765

PATIENT
  Age: 46 Year
  Sex: Female

DRUGS (2)
  1. ENBREL [Suspect]
     Indication: RHEUMATOID ARTHRITIS
     Dosage: 50 MG, QWK
     Route: 058
     Dates: start: 20050601
  2. METHOTREXATE [Concomitant]
     Dosage: 2.5 MG, QWK

REACTIONS (17)
  - HEARING IMPAIRED [None]
  - EYE INFECTION [None]
  - UPPER RESPIRATORY TRACT CONGESTION [None]
  - SWELLING FACE [None]
  - ERYTHEMA [None]
  - HEADACHE [None]
  - PYREXIA [None]
  - RHEUMATOID ARTHRITIS [None]
  - COUGH [None]
  - BRONCHITIS [None]
  - VERTIGO [None]
  - OEDEMA PERIPHERAL [None]
  - CONTUSION [None]
  - DYSPNOEA [None]
  - RESPIRATORY TRACT INFECTION [None]
  - LOCAL SWELLING [None]
  - SINUSITIS [None]
